FAERS Safety Report 7291291-0 (Version None)
Quarter: 2011Q1

REPORT INFORMATION
  Report Type: 
  Country: None (occurrence: None)
  Receive Date: 20110214
  Receipt Date: 20110209
  Transmission Date: 20110831
  Serious: Yes (Other)
  Sender: FDA-Public Use
  Company Number: US-CEPHALON-2011000654

PATIENT
  Age: 40 Year
  Sex: Male

DRUGS (2)
  1. RITUXIMAB [Concomitant]
     Indication: NON-HODGKIN'S LYMPHOMA
  2. TREANDA [Suspect]
     Indication: NON-HODGKIN'S LYMPHOMA
     Route: 041

REACTIONS (3)
  - COLITIS [None]
  - T-LYMPHOCYTE COUNT DECREASED [None]
  - OPPORTUNISTIC INFECTION [None]
